FAERS Safety Report 18713163 (Version 5)
Quarter: 2021Q2

REPORT INFORMATION
  Report Type: Spontaneous
  Country: US (occurrence: US)
  Receive Date: 20210107
  Receipt Date: 20210608
  Transmission Date: 20210717
  Serious: Yes (Other)
  Sender: FDA-Public Use
  Company Number: US-PFIZER INC-2021000803

PATIENT
  Age: 57 Year
  Sex: Male

DRUGS (2)
  1. SUTENT [Suspect]
     Active Substance: SUNITINIB MALATE
     Indication: GASTROINTESTINAL STROMAL TUMOUR
     Dosage: 37.5 MG, UNK
  2. SUTENT [Suspect]
     Active Substance: SUNITINIB MALATE
     Indication: DEEP VEIN THROMBOSIS

REACTIONS (8)
  - Diabetes mellitus [Not Recovered/Not Resolved]
  - Anxiety [Unknown]
  - Pain [Unknown]
  - General physical health deterioration [Unknown]
  - Feeling abnormal [Unknown]
  - Hair disorder [Unknown]
  - Skin discolouration [Unknown]
  - Dermatitis acneiform [Unknown]
